FAERS Safety Report 4665980-8 (Version None)
Quarter: 2005Q2

REPORT INFORMATION
  Report Type: 
  Country: None (occurrence: None)
  Receive Date: 20050517
  Receipt Date: 20050408
  Transmission Date: 20051028
  Serious: No
  Sender: FDA-Public Use
  Company Number: S05-USA-01857-01

PATIENT
  Age: 83 Year
  Sex: Male

DRUGS (5)
  1. NAMENDA [Suspect]
     Indication: AMNESIA
     Dosage: 5 MG QD PO
     Route: 048
     Dates: start: 20050228, end: 20050306
  2. NAMENDA [Suspect]
     Indication: AMNESIA
     Dosage: 5 MG BID PO
     Route: 048
     Dates: start: 20050307, end: 20050313
  3. NAMENDA [Suspect]
     Indication: AMNESIA
     Dosage: 15 MG QD PO
     Route: 048
     Dates: start: 20050314, end: 20050320
  4. NAMENDA [Suspect]
     Indication: AMNESIA
     Dosage: 10 MG BID PO
     Route: 048
     Dates: start: 20050321
  5. ARICEPT [Concomitant]

REACTIONS (4)
  - ANOREXIA [None]
  - ASTHENIA [None]
  - MYALGIA [None]
  - NAUSEA [None]
